FAERS Safety Report 17781597 (Version 1)
Quarter: 2020Q2

REPORT INFORMATION
  Report Type: Other
  Country: CH (occurrence: CH)
  Receive Date: 20200514
  Receipt Date: 20200514
  Transmission Date: 20200714
  Serious: Yes (Life-Threatening, Hospitalization, Other)
  Sender: FDA-Public Use
  Company Number: CH-ASTELLAS-2020US015845

PATIENT
  Sex: Female

DRUGS (3)
  1. PROGRAF [Suspect]
     Active Substance: TACROLIMUS
     Indication: RENAL TRANSPLANT
     Route: 065
  2. CELLCEPT [Suspect]
     Active Substance: MYCOPHENOLATE MOFETIL\MYCOPHENOLATE MOFETIL HYDROCHLORIDE
     Indication: IMMUNOSUPPRESSANT DRUG THERAPY
     Route: 065
  3. PREDNISON GALEPHARM [Suspect]
     Active Substance: PREDNISONE
     Indication: OLIGOARTHRITIS
     Route: 065

REACTIONS (4)
  - Pneumonia [Unknown]
  - COVID-19 pneumonia [Unknown]
  - Superinfection bacterial [Unknown]
  - COVID-19 [Unknown]
